FAERS Safety Report 7419983-0 (Version None)
Quarter: 2011Q2

REPORT INFORMATION
  Report Type: 
  Country: None (occurrence: None)
  Receive Date: 20110418
  Receipt Date: 20110408
  Transmission Date: 20111010
  Serious: No
  Sender: FDA-Public Use
  Company Number: US-BIOGENIDEC-2010BI025650

PATIENT
  Sex: Female

DRUGS (1)
  1. TYSABRI [Suspect]
     Indication: MULTIPLE SCLEROSIS
     Route: 042
     Dates: start: 20100303

REACTIONS (11)
  - POOR VENOUS ACCESS [None]
  - COGNITIVE DISORDER [None]
  - BALANCE DISORDER [None]
  - TREMOR [None]
  - MULTIPLE SCLEROSIS RELAPSE [None]
  - FATIGUE [None]
  - DIZZINESS [None]
  - HYPOAESTHESIA [None]
  - CONTUSION [None]
  - SPEECH DISORDER [None]
  - MULTIPLE SCLEROSIS [None]
